FAERS Safety Report 8558173-5 (Version None)
Quarter: 2012Q3

REPORT INFORMATION
  Report Type: 
  Country: None (occurrence: None)
  Receive Date: 20120801
  Receipt Date: 20120725
  Transmission Date: 20120928
  Serious: Yes (Other)
  Sender: FDA-Public Use
  Company Number: JP-VERTEX PHARMACEUTICALS INC.-AE-2012-006050

PATIENT
  Age: 60 Year
  Sex: Male

DRUGS (7)
  1. CANDESARTAN CILEXETIL [Concomitant]
     Route: 048
     Dates: end: 20120423
  2. RIBAVIRIN [Concomitant]
     Indication: HEPATITIS C
     Route: 048
     Dates: start: 20120413, end: 20120423
  3. TELAVIC (TELAPREVIR) [Suspect]
     Indication: HEPATITIS C
     Route: 048
     Dates: start: 20120413, end: 20120423
  4. GLYCYRON [Concomitant]
     Route: 048
  5. RABEPRAZOLE SODIUM [Concomitant]
     Route: 048
     Dates: start: 20120412, end: 20120423
  6. PEGINTERFERON ALFA-2B [Concomitant]
     Indication: HEPATITIS C
     Route: 058
     Dates: start: 20120413, end: 20120421
  7. URSO 250 [Concomitant]
     Route: 048

REACTIONS (2)
  - DRUG ERUPTION [None]
  - DIVERTICULAR PERFORATION [None]
